FAERS Safety Report 7040501-3 (Version None)
Quarter: 2010Q4

REPORT INFORMATION
  Report Type: 
  Country: None (occurrence: None)
  Receive Date: 20101008
  Receipt Date: 20101008
  Transmission Date: 20110411
  Serious: No
  Sender: FDA-Public Use
  Company Number: None

PATIENT
  Age: 60 Year
  Sex: Male
  Weight: 62.5964 kg

DRUGS (1)
  1. IBUPROFEN [Suspect]
     Indication: ABDOMINAL PAIN
     Dates: start: 20100907

REACTIONS (3)
  - FEELING ABNORMAL [None]
  - NAUSEA [None]
  - TINNITUS [None]
